FAERS Safety Report 4749892-7 (Version None)
Quarter: 2005Q3

REPORT INFORMATION
  Report Type: 
  Country: None (occurrence: None)
  Receive Date: 20050822
  Receipt Date: 20050812
  Transmission Date: 20060218
  Serious: Yes (Hospitalization)
  Sender: FDA-Public Use
  Company Number: FR-ABBOTT-05P-056-0308229-00

PATIENT
  Age: 52 Year
  Sex: Male

DRUGS (2)
  1. DEPAKENE [Suspect]
     Indication: EPILEPSY
     Route: 048
     Dates: start: 20050418
  2. DEPAKENE [Suspect]
     Route: 048
     Dates: start: 19850101, end: 20050328

REACTIONS (2)
  - DIPLOPIA [None]
  - GUILLAIN-BARRE SYNDROME [None]
